FAERS Safety Report 23233024 (Version 1)
Quarter: 2023Q4

REPORT INFORMATION
  Report Type: Spontaneous
  Country: SK (occurrence: SK)
  Receive Date: 20231128
  Receipt Date: 20231128
  Transmission Date: 20240110
  Serious: Yes (Other)
  Sender: FDA-Public Use
  Company Number: SK-PFIZER INC-PV202300183091

PATIENT

DRUGS (7)
  1. GOSERELIN [Suspect]
     Active Substance: GOSERELIN
     Indication: Invasive ductal breast carcinoma
     Dosage: UNK
     Route: 058
     Dates: start: 202211
  2. ZOLADEX [Suspect]
     Active Substance: GOSERELIN ACETATE
     Indication: Invasive ductal breast carcinoma
     Dosage: UNK
  3. LETROZOLE [Suspect]
     Active Substance: LETROZOLE
     Indication: Invasive ductal breast carcinoma
     Dosage: UNK, 9 ADMINISTRATIONS
     Route: 065
     Dates: end: 202309
  4. PALBOCICLIB [Suspect]
     Active Substance: PALBOCICLIB
     Indication: Invasive ductal breast carcinoma
     Dosage: 125 MG 3/1 REGIMEN125.0MG EVERY CYCLE
     Route: 048
     Dates: start: 202211, end: 202309
  5. PALBOCICLIB [Suspect]
     Active Substance: PALBOCICLIB
     Dosage: FROM 5. CYCLE 75 MG, 3/1 REGIMEN, 9 ADMINISTRATIONS75.0MG UNKNOWN
     Dates: start: 202308, end: 202309
  6. DENOSUMAB [Suspect]
     Active Substance: DENOSUMAB
     Indication: Invasive ductal breast carcinoma
     Dosage: UNK, EVERY 4 WEEKS
     Route: 058
  7. CALTRATE PLUS [BORON;CALCIUM;COLECALCIFEROL;COPPER;MAGNESIUM;MANGANESE [Concomitant]
     Indication: Product used for unknown indication
     Dosage: 2X1
     Route: 065

REACTIONS (5)
  - Neoplasm progression [Unknown]
  - Neutropenia [Unknown]
  - Leukopenia [Unknown]
  - Fatigue [Unknown]
  - Asthenia [Unknown]
